FAERS Safety Report 6036209-3 (Version None)
Quarter: 2009Q1

REPORT INFORMATION
  Report Type: 
  Country: None (occurrence: None)
  Receive Date: 20090113
  Receipt Date: 20090108
  Transmission Date: 20090719
  Serious: No
  Sender: FDA-Public Use
  Company Number: US-B.I. PHARMACEUTICALS,INC./RIDGEFIELD-2008-BP-18021BP

PATIENT
  Sex: Male

DRUGS (3)
  1. FLOMAX [Suspect]
     Indication: BENIGN PROSTATIC HYPERPLASIA
     Dosage: .4MG
     Route: 048
     Dates: start: 20080901
  2. FLOMAX [Suspect]
     Indication: DYSURIA
  3. SULFAFALIDINE [Concomitant]
     Indication: CROHN'S DISEASE

REACTIONS (2)
  - POLLAKIURIA [None]
  - URINE FLOW DECREASED [None]
